FAERS Safety Report 5848479-2 (Version None)
Quarter: 2008Q3

REPORT INFORMATION
  Report Type: 
  Country: None (occurrence: None)
  Receive Date: 20080815
  Receipt Date: 20080815
  Transmission Date: 20090109
  Serious: Yes (Other)
  Sender: FDA-Public Use
  Company Number: None

PATIENT
  Age: 64 Year
  Sex: Male

DRUGS (10)
  1. GABAPENTIN [Suspect]
     Indication: DIABETIC NEUROPATHY
     Dosage: 300MG TID PO
     Route: 048
     Dates: start: 20080801, end: 20080804
  2. AMITRIPTYLINE HCL [Concomitant]
  3. AVAPRO [Concomitant]
  4. CARVEDILOL [Concomitant]
  5. HYDRALAZINE HCL [Concomitant]
  6. LANTUS [Concomitant]
  7. NOVOLOG [Concomitant]
  8. SIMVASTATIN [Concomitant]
  9. SODIUM BICARONATE [Concomitant]
  10. NIFEDIPINE [Concomitant]

REACTIONS (2)
  - MUSCLE TWITCHING [None]
  - TREMOR [None]
